FAERS Safety Report 8339256-1 (Version None)
Quarter: 2012Q2

REPORT INFORMATION
  Report Type: 
  Country: None (occurrence: None)
  Receive Date: 20120502
  Receipt Date: 20120418
  Transmission Date: 20120825
  Serious: Yes (Hospitalization)
  Sender: FDA-Public Use
  Company Number: 2012000091

PATIENT
  Age: 77 Year
  Sex: Male
  Weight: 75 kg

DRUGS (5)
  1. SIMVASTATIN [Suspect]
     Indication: CORONARY ANGIOPLASTY
     Dosage: 40 MG, QD
     Dates: start: 20100312, end: 20100401
  2. BISOPROLOL FUMARATE [Suspect]
     Indication: CORONARY ANGIOPLASTY
     Dosage: 1.25 MG, QD
     Dates: start: 20100312, end: 20100401
  3. CLOPIDEGREL [Suspect]
     Indication: CORONARY ANGIOPLASTY
     Dosage: 75 MG, QD
     Dates: start: 20100312, end: 20100430
  4. PANTOPRAZOLE SODIUM [Suspect]
     Indication: CORONARY ANGIOPLASTY
     Dosage: 40 MG, QD
     Dates: start: 20100312, end: 20100401
  5. ACEON [Suspect]
     Indication: CORONARY ANGIOPLASTY
     Dosage: 4 MG, QD
     Dates: start: 20100312, end: 20100401

REACTIONS (1)
  - HEPATITIS CHOLESTATIC [None]
